FAERS Safety Report 11870444 (Version 1)
Quarter: 2015Q4

REPORT INFORMATION
  Report Type: Spontaneous
  Country: US (occurrence: US)
  Receive Date: 20151228
  Receipt Date: 20151228
  Transmission Date: 20160305
  Serious: Yes (Hospitalization)
  Sender: FDA-Public Use
  Company Number: US-SA-2015SA012249

PATIENT
  Sex: Female
  Weight: 80.74 kg

DRUGS (13)
  1. PLAVIX [Suspect]
     Active Substance: CLOPIDOGREL BISULFATE
     Dosage: LOT DETAILS- 1, THEN A 0 OR D, THEN 64104, 1238055A2
     Route: 065
     Dates: start: 2004, end: 201109
  2. DEFINITY [Concomitant]
     Active Substance: PERFLUTREN
     Indication: PROPHYLAXIS
     Dosage: PUT IN WOMEN DURING STRESS TEST OR ECHOCARDIOGRAMS TO PREVENT ARTIFACT OF BIG BREASTS
     Route: 042
  3. CLOPIDOGREL [Suspect]
     Active Substance: CLOPIDOGREL BISULFATE
     Route: 065
  4. VITAMIN D [Concomitant]
     Active Substance: CHOLECALCIFEROL
     Dosage: DOSE:50000 UNIT(S)
  5. IBUPROFEN. [Concomitant]
     Active Substance: IBUPROFEN
     Indication: PAIN
  6. AVALIDE [Concomitant]
     Active Substance: HYDROCHLOROTHIAZIDE\IRBESARTAN
  7. LEVOTHYROXINE. [Concomitant]
     Active Substance: LEVOTHYROXINE
  8. PLAVIX [Suspect]
     Active Substance: CLOPIDOGREL BISULFATE
     Dosage: LOT DETAILS- 1, THEN A 0 OR D, THEN 64104, 1238055A2
     Route: 065
  9. TYLENOL [Concomitant]
     Active Substance: ACETAMINOPHEN
     Indication: PAIN
  10. VITAMIN B12 [Concomitant]
     Active Substance: CYANOCOBALAMIN
  11. LASIX [Concomitant]
     Active Substance: FUROSEMIDE
  12. METOPROLOL [Concomitant]
     Active Substance: METOPROLOL
     Indication: BLOOD PRESSURE MEASUREMENT
  13. ACETYLSALICYLIC ACID [Concomitant]
     Active Substance: ASPIRIN

REACTIONS (8)
  - Myocardial infarction [Unknown]
  - Weight increased [Unknown]
  - Feeling hot [Unknown]
  - Fall [Unknown]
  - Contusion [Unknown]
  - Oedema peripheral [Unknown]
  - Erythema [Unknown]
  - Tooth fracture [Unknown]

NARRATIVE: CASE EVENT DATE: 2010
